FAERS Safety Report 4830975-8 (Version None)
Quarter: 2005Q4

REPORT INFORMATION
  Report Type: 
  Country: None (occurrence: None)
  Receive Date: 20051114
  Receipt Date: 20051107
  Transmission Date: 20060501
  Serious: No
  Sender: FDA-Public Use
  Company Number: 2005-134378-NL

PATIENT
  Age: 29 Year
  Sex: Female

DRUGS (5)
  1. MIRTAZAPINE [Suspect]
     Indication: DEPRESSION
     Dosage: 15 MG ORAL
     Route: 048
     Dates: start: 20050222, end: 20050223
  2. FLUOXETINE HYDROCHLORIDE [Concomitant]
  3. LANSOPRAZOLE [Concomitant]
  4. TRANEXAMIC ACID [Concomitant]
  5. VALDECOXIB [Concomitant]

REACTIONS (4)
  - DIZZINESS [None]
  - HEADACHE [None]
  - PALPITATIONS [None]
  - PANIC ATTACK [None]
